FAERS Safety Report 7082777-2 (Version None)
Quarter: 2010Q4

REPORT INFORMATION
  Report Type: 
  Country: None (occurrence: None)
  Receive Date: 20101104
  Receipt Date: 20101025
  Transmission Date: 20110411
  Serious: Yes (Other)
  Sender: FDA-Public Use
  Company Number: NL-BRISTOL-MYERS SQUIBB COMPANY-15318199

PATIENT
  Age: 86 Year
  Sex: Male
  Weight: 50 kg

DRUGS (3)
  1. APROVEL [Suspect]
     Indication: HYPERTENSION
     Dosage: 1 DF=DAILY DOSE OF 4 TIMES THE NORMAL DOSE
     Route: 048
     Dates: start: 20080101
  2. CHLORTHALIDONE [Concomitant]
     Indication: ESSENTIAL HYPERTENSION
     Route: 048
     Dates: start: 19650101
  3. ATENOLOL [Concomitant]
     Indication: ESSENTIAL HYPERTENSION
     Route: 048
     Dates: start: 20080101

REACTIONS (3)
  - MUSCLE ATROPHY [None]
  - MYOPATHY [None]
  - OVERDOSE [None]
